FAERS Safety Report 10335969 (Version 1)
Quarter: 2014Q3

REPORT INFORMATION
  Report Type: Spontaneous
  Country: US (occurrence: US)
  Receive Date: 20140723
  Receipt Date: 20140723
  Transmission Date: 20150326
  Serious: Yes (Death)
  Sender: FDA-Public Use
  Company Number: US-BRISTOL-MYERS SQUIBB COMPANY-19391242

PATIENT
  Age: 87 Year
  Sex: Female

DRUGS (19)
  1. TRAVATAN [Concomitant]
     Active Substance: TRAVOPROST
     Dosage: OPHTHALMIC SOLUTION: INSTILL 1 DROP INTO BOTH EYES AT BEDTIME.
     Route: 047
  2. K-DUR 20 [Concomitant]
     Dosage: 60TABS; TAKE ONE TABLET BY MOUTH BID.20 MEILQ TABLET
  3. ALBUTEROL INHALER [Concomitant]
     Active Substance: ALBUTEROL
     Dosage: 1DF:(PROVENTIL;VENTOLIN)5MG/ML)0.5% NEBULIZER SOL.?INHALE 2.5 MG BY MOUTH 4/DAY AS NEEDED.
  4. AZELASTINE [Concomitant]
     Active Substance: AZELASTINE
     Route: 045
  5. MULTIVITAMIN [Concomitant]
     Active Substance: VITAMINS
     Route: 048
  6. REVATIO [Suspect]
     Active Substance: SILDENAFIL CITRATE
     Route: 048
     Dates: end: 20130802
  7. XALATAN [Concomitant]
     Active Substance: LATANOPROST
     Dosage: INSTILL. 1 DROP INTO BOTH EYES AT BEDTIME.
     Route: 047
  8. ZYRTEC [Concomitant]
     Active Substance: CETIRIZINE HYDROCHLORIDE
     Indication: HYPERSENSITIVITY
     Dosage: ONCE DAILY 10 MG GEL CAPSULE
  9. ARAVA [Concomitant]
     Active Substance: LEFLUNOMIDE
     Dosage: TABS
     Route: 048
  10. FISH OIL [Concomitant]
     Active Substance: FISH OIL
     Dosage: 1000MG CAPS TAKE 1,000MG ORALLY 3/DAY WITH MEALS.
     Route: 048
  11. ASPIRIN. [Concomitant]
     Active Substance: ASPIRIN
     Dosage: 1DF:ASPIR-81 PO TAKES 1 TABS
     Route: 048
  12. CALCIUM + VITAMIN D [Concomitant]
     Active Substance: CALCIUM\VITAMIN D
     Dosage: 1DF:CALCIUM 600+D600-400MG-UNIT TABS
     Route: 048
  13. COUMADIN [Suspect]
     Active Substance: WARFARIN SODIUM
     Indication: ANTICOAGULANT THERAPY
     Dosage: TAKE 1 TAB BY MOUTH EVERY EVENING
     Route: 048
  14. LUTEIN [Concomitant]
     Active Substance: LUTEIN
     Dosage: CAPS
     Route: 048
  15. ALBUTEROL. [Concomitant]
     Active Substance: ALBUTEROL
     Dosage: ALBUTEROL HFA INHALER?INHALE 2.PUFFS BY MOUTH EVERY 6 HRS AS NEEDED
     Route: 048
  16. LASIX [Concomitant]
     Active Substance: FUROSEMIDE
     Dosage: 30TABS;TAKE I TAB BY MOUTH ONCE DAILY.
     Route: 048
  17. FIBERCHOICE [Concomitant]
     Active Substance: INULIN
     Dosage: TAKE 2G BY MOUTH ONCE DAILY CHEW
     Route: 048
  18. OXYGEN. [Concomitant]
     Active Substance: OXYGEN
     Dosage: NEBULIZERS - USE AS DIRECTED
  19. TYLENOL [Concomitant]
     Active Substance: ACETAMINOPHEN
     Dosage: TABS; 2 TABS BY MOUTH EVERY 4 HR AS NEEDED
     Route: 048

REACTIONS (1)
  - Gastrointestinal haemorrhage [Fatal]
